FAERS Safety Report 8388846-9 (Version None)
Quarter: 2012Q2

REPORT INFORMATION
  Report Type: 
  Country: None (occurrence: None)
  Receive Date: 20120528
  Receipt Date: 20120517
  Transmission Date: 20120825
  Serious: Yes (Other)
  Sender: FDA-Public Use
  Company Number: US-BIOGENIDEC-2012BI017898

PATIENT
  Sex: Female

DRUGS (3)
  1. TYSABRI [Suspect]
     Indication: MULTIPLE SCLEROSIS
     Route: 042
     Dates: start: 20061129, end: 20090407
  2. AVONEX [Concomitant]
     Indication: MULTIPLE SCLEROSIS
     Route: 030
     Dates: start: 19990127
  3. TYSABRI [Suspect]
     Route: 042
     Dates: start: 20111117

REACTIONS (3)
  - CARDIAC FAILURE CONGESTIVE [None]
  - DECUBITUS ULCER [None]
  - ARRHYTHMIA [None]
